FAERS Safety Report 9158029 (Version 1)
Quarter: 2013Q1

REPORT INFORMATION
  Report Type: Spontaneous
  Country: IT (occurrence: None)
  Receive Date: 20130213
  Receipt Date: 20130213
  Transmission Date: 20140127
  Serious: Yes (Other)
  Sender: FDA-Public Use
  Company Number: 1590795

PATIENT
  Age: 47 Year
  Sex: Female

DRUGS (4)
  1. CARBOPLATIN [Suspect]
     Indication: OVARIAN CANCER
     Dosage: 610 MG MILLIGRAM(S), CYCLICAL, INTRAVENOUS (NOT OTHERWISE SPECIFIED)
     Route: 042
     Dates: start: 20121204, end: 20130131
  2. CAELYX [Concomitant]
  3. ALOXI [Concomitant]
  4. TRIMETON [Concomitant]

REACTIONS (4)
  - Hypersensitivity [None]
  - Erythema [None]
  - Rhinitis [None]
  - Abdominal pain [None]
